FAERS Safety Report 17429056 (Version 1)
Quarter: 2020Q1

REPORT INFORMATION
  Report Type: Spontaneous
  Country: US (occurrence: US)
  Receive Date: 20200215
  Receipt Date: 20200215
  Transmission Date: 20200409
  Serious: Yes (Other)
  Sender: FDA-Public Use
  Company Number: None

PATIENT
  Age: 79 Year
  Sex: Female
  Weight: 67.5 kg

DRUGS (5)
  1. LOVASTATIN. [Concomitant]
     Active Substance: LOVASTATIN
  2. LISINOPRIL. [Concomitant]
     Active Substance: LISINOPRIL
  3. ESTRADIOL VAGINAL [Suspect]
     Active Substance: ESTRADIOL
     Indication: MENOPAUSAL DISORDER
     Dosage: ?          QUANTITY:1 1/2 GRAM;?
     Route: 067
     Dates: start: 20180201, end: 20200211
  4. OMEPRAZOLE. [Concomitant]
     Active Substance: OMEPRAZOLE
  5. 81 MG ASPIRIN [Concomitant]
     Active Substance: ASPIRIN

REACTIONS (2)
  - Vulvovaginal pruritus [None]
  - Vulvovaginal burning sensation [None]

NARRATIVE: CASE EVENT DATE: 20200211
